FAERS Safety Report 9702862 (Version 2)
Quarter: 2013Q4

REPORT INFORMATION
  Report Type: Spontaneous
  Country: US (occurrence: None)
  Receive Date: 20131120
  Receipt Date: 20131211
  Transmission Date: 20140711
  Serious: Yes (Hospitalization)
  Sender: FDA-Public Use
  Company Number: 2013-003427

PATIENT
  Age: 90 Year
  Sex: Female

DRUGS (3)
  1. ASACOL HD [Suspect]
     Indication: COLITIS ULCERATIVE
     Route: 048
     Dates: start: 2013, end: 20131101
  2. VITAMINS NOS ( VITAMINS NOS) [Concomitant]
  3. MINERAL SUPPLEMENTS [Concomitant]

REACTIONS (9)
  - Hemiparesis [None]
  - Monoparesis [None]
  - Cough [None]
  - Asthenia [None]
  - Vision blurred [None]
  - Visual impairment [None]
  - Weight decreased [None]
  - Decreased appetite [None]
  - Transient ischaemic attack [None]
